FAERS Safety Report 22961269 (Version 2)
Quarter: 2025Q3

REPORT INFORMATION
  Report Type: Spontaneous
  Country: US (occurrence: US)
  Receive Date: 20230920
  Receipt Date: 20250903
  Transmission Date: 20251021
  Serious: No
  Sender: SANOFI AVENTIS
  Company Number: US-SA-SAC20230918000216

PATIENT
  Sex: Female

DRUGS (6)
  1. DUPIXENT [Suspect]
     Active Substance: DUPILUMAB
     Indication: Asthma
     Dosage: 300 MG, QOW
     Route: 058
     Dates: start: 20220517
  2. LEVOCETIRIZINE DIHYDROCHLORIDE [Concomitant]
     Active Substance: LEVOCETIRIZINE DIHYDROCHLORIDE
  3. BUTALBITAL AND ACETAMINOPHEN [Concomitant]
     Active Substance: ACETAMINOPHEN\BUTALBITAL
  4. PREGABALIN [Concomitant]
     Active Substance: PREGABALIN
  5. ONDANSETRON [Concomitant]
     Active Substance: ONDANSETRON
  6. BUTALBITAL, ASPIRIN, CAFFEINE AND CODEINE PHOSPHATE [Concomitant]
     Active Substance: ASPIRIN\BUTALBITAL\CAFFEINE\CODEINE PHOSPHATE

REACTIONS (2)
  - Impaired quality of life [Recovering/Resolving]
  - Vision blurred [Not Recovered/Not Resolved]
